FAERS Safety Report 16612795 (Version 1)
Quarter: 2019Q3

REPORT INFORMATION
  Report Type: Spontaneous
  Country: US (occurrence: US)
  Receive Date: 20190722
  Receipt Date: 20190722
  Transmission Date: 20191004
  Serious: No
  Sender: FDA-Public Use
  Company Number: None

PATIENT
  Sex: Female

DRUGS (5)
  1. HUMIRA [Suspect]
     Active Substance: ADALIMUMAB
     Indication: PRODUCT USED FOR UNKNOWN INDICATION
     Dosage: ?          OTHER FREQUENCY:EVERY TWO WEEKS;?
     Route: 058
     Dates: start: 20190412
  2. NITROGLYCERIN, XIFAXAN, CLIMARA PRO, ESCITALOPRAM [Concomitant]
  3. GRALISE, LEVOCETIRIZI, TRAZODONE, PANTOPRAZOLE [Concomitant]
  4. LEFLUNOMIDE, SERTRALINE, AZELASTINE, FLUTICASONE [Concomitant]
  5. NABUMETONE, FOLIC ACID, LEVOTHYROXINE, TOPIRAMATE [Concomitant]

REACTIONS (3)
  - Infection [None]
  - Product dose omission [None]
  - Condition aggravated [None]
